FAERS Safety Report 8599876-6 (Version None)
Quarter: 2012Q3

REPORT INFORMATION
  Report Type: 
  Country: None (occurrence: None)
  Receive Date: 20120816
  Receipt Date: 20120521
  Transmission Date: 20120928
  Serious: No
  Sender: FDA-Public Use
  Company Number: US-AMGEN-USASP2011044716

PATIENT
  Age: 77 Year
  Sex: Female
  Weight: 77.098 kg

DRUGS (3)
  1. PRADAXA [Concomitant]
     Indication: ATRIAL FIBRILLATION
     Dosage: 150 MG, BID
     Route: 048
     Dates: start: 20110516
  2. NPLATE [Suspect]
     Indication: IDIOPATHIC THROMBOCYTOPENIC PURPURA
     Dosage: 80 MUG, QWK
     Route: 058
     Dates: start: 20110516
  3. CORTICOSTEROIDS [Concomitant]
     Dosage: UNK

REACTIONS (3)
  - CONTUSION [None]
  - FLUSHING [None]
  - ERYTHEMA [None]
